FAERS Safety Report 8621340-6 (Version None)
Quarter: 2012Q3

REPORT INFORMATION
  Report Type: 
  Country: None (occurrence: None)
  Receive Date: 20120824
  Receipt Date: 20120810
  Transmission Date: 20120928
  Serious: Yes (Other)
  Sender: FDA-Public Use
  Company Number: JP-GILEAD-2012-0058996

PATIENT
  Sex: Female

DRUGS (7)
  1. LETAIRIS [Suspect]
     Indication: PULMONARY ARTERIAL HYPERTENSION
     Dosage: 2.5 MG, QD
     Route: 048
     Dates: start: 20120307
  2. AZATHIOPRINE SODIUM [Concomitant]
     Route: 048
  3. LETAIRIS [Suspect]
     Dosage: 5 MG, QD
     Route: 048
     Dates: end: 20120608
  4. CYCLOSPORINE [Concomitant]
     Indication: PULMONARY ARTERIAL HYPERTENSION
     Route: 048
  5. REVATIO [Concomitant]
     Indication: PULMONARY ARTERIAL HYPERTENSION
     Route: 048
  6. WARFARIN SODIUM [Suspect]
     Indication: PULMONARY ARTERIAL HYPERTENSION
     Route: 048
  7. PREDNISOLONE [Concomitant]
     Route: 048

REACTIONS (5)
  - HAEMORRHAGE [None]
  - HEADACHE [None]
  - ANAEMIA [None]
  - MATERNAL EXPOSURE DURING PREGNANCY [None]
  - UTERINE CERVICAL EROSION [None]
